FAERS Safety Report 10992750 (Version 1)
Quarter: 2015Q2

REPORT INFORMATION
  Report Type: Spontaneous
  Country: SE (occurrence: SE)
  Receive Date: 20150406
  Receipt Date: 20150406
  Transmission Date: 20150821
  Serious: Yes (Other)
  Sender: FDA-Public Use
  Company Number: SE-AMGEN-SWESP2015031742

PATIENT
  Sex: Female

DRUGS (1)
  1. NEULASTA [Suspect]
     Active Substance: PEGFILGRASTIM
     Indication: PRODUCT USED FOR UNKNOWN INDICATION
     Dosage: 6 MG, ONE TIME DOSE
     Route: 065

REACTIONS (3)
  - Pregnancy [Unknown]
  - Diffuse large B-cell lymphoma [Unknown]
  - Neutropenia [Unknown]

NARRATIVE: CASE EVENT DATE: 2015
